FAERS Safety Report 6476574-6 (Version None)
Quarter: 2009Q4

REPORT INFORMATION
  Report Type: 
  Country: None (occurrence: None)
  Receive Date: 20091207
  Receipt Date: 20091127
  Transmission Date: 20100525
  Serious: Yes (Life-Threatening, Hospitalization)
  Sender: FDA-Public Use
  Company Number: FR-KINGPHARMUSA00001-K200901493

PATIENT
  Age: 81 Year
  Sex: Male

DRUGS (10)
  1. ALTACE [Suspect]
     Indication: HYPERTENSION
     Dosage: 5 MG, QD
     Route: 048
     Dates: end: 20091102
  2. ALTACE [Suspect]
     Dosage: 2.5 MG, QD
     Route: 048
     Dates: start: 20091104
  3. NATI-K [Suspect]
     Dosage: 500 MG, QD
     Route: 048
     Dates: end: 20091102
  4. MODAMIDE [Suspect]
     Dosage: 5 MG, BID
     Route: 048
     Dates: start: 20091001, end: 20091102
  5. ELISOR [Concomitant]
     Indication: DYSLIPIDAEMIA
     Dosage: 20 MG, UNK
  6. TRIVASTAL [Concomitant]
     Indication: ARTERITIS OBLITERANS
     Dosage: 50 MG, UNK
  7. LASILIX [Concomitant]
     Indication: HYPERTENSION
     Dosage: 40 MG, QD
  8. GLUCOPHAGE [Concomitant]
     Indication: TYPE 2 DIABETES MELLITUS
     Dosage: 850 MG, BID
  9. ZYLORIC [Concomitant]
     Indication: HYPERURICAEMIA
     Dosage: 100 MG, QD
  10. PREVISCAN [Concomitant]
     Indication: ATRIAL FLUTTER
     Dosage: 25 MG, QD

REACTIONS (13)
  - BRADYCARDIA [None]
  - CARDIO-RESPIRATORY ARREST [None]
  - CHEST PAIN [None]
  - DRUG INTERACTION [None]
  - ELECTROCARDIOGRAM QRS COMPLEX PROLONGED [None]
  - HYPERHIDROSIS [None]
  - HYPERKALAEMIA [None]
  - LOSS OF CONSCIOUSNESS [None]
  - MALAISE [None]
  - PALLOR [None]
  - RENAL FAILURE ACUTE [None]
  - SHOCK [None]
  - TACHYCARDIA [None]
